FAERS Safety Report 5210613-5 (Version None)
Quarter: 2007Q1

REPORT INFORMATION
  Report Type: 
  Country: None (occurrence: None)
  Receive Date: 20070117
  Receipt Date: 20070108
  Transmission Date: 20070707
  Serious: Yes (Death)
  Sender: FDA-Public Use
  Company Number: US-BRISTOL-MYERS SQUIBB COMPANY-13635628

PATIENT

DRUGS (2)
  1. PRAVACHOL [Suspect]
  2. PLAVIX [Suspect]

REACTIONS (1)
  - DEATH [None]
